FAERS Safety Report 8960487 (Version 1)
Quarter: 2012Q4

REPORT INFORMATION
  Report Type: Spontaneous
  Country: GB (occurrence: None)
  Receive Date: 20121203
  Receipt Date: 20121203
  Transmission Date: 20130627
  Serious: Yes (Disabling, Other)
  Sender: FDA-Public Use
  Company Number: 2012MA013667

PATIENT
  Age: 50 Year
  Sex: Female

DRUGS (3)
  1. NAPROXEN [Suspect]
     Indication: PULLED MUSCLE
     Route: 048
     Dates: start: 20121015, end: 20121108
  2. GABAPENTIN [Concomitant]
  3. PARACETAMOL [Concomitant]

REACTIONS (3)
  - Swollen tongue [None]
  - Drug dose omission [None]
  - Abdominal pain [None]
